FAERS Safety Report 10145472 (Version 2)
Quarter: 2014Q2

REPORT INFORMATION
  Report Type: Spontaneous
  Country: US (occurrence: US)
  Receive Date: 20140501
  Receipt Date: 20140501
  Transmission Date: 20141212
  Serious: Yes (Other)
  Sender: FDA-Public Use
  Company Number: US-AMGEN-USASP2014027677

PATIENT
  Age: 76 Year
  Sex: Female
  Weight: 41.72 kg

DRUGS (11)
  1. PROLIA [Suspect]
     Indication: OSTEOPOROSIS POSTMENOPAUSAL
     Dosage: 60 MG, Q6MO
     Route: 058
     Dates: start: 20140228
  2. SYNTHROID [Concomitant]
     Indication: THYROID DISORDER
     Dosage: 100 MUG, QD
     Route: 048
  3. DIOVAN [Concomitant]
     Indication: HYPERTENSION
     Dosage: 80 MG, QD
     Route: 048
  4. SINGULAIR [Concomitant]
     Indication: ASTHMA
     Dosage: 10 MG, QD
     Route: 048
  5. LORATADINE [Concomitant]
     Dosage: 5 MG, QD
  6. NEXIUM                             /01479302/ [Concomitant]
     Dosage: 40 MG, QD
  7. COLCRYS [Concomitant]
     Indication: ARTHRITIS
     Dosage: 0.6 MG, BID
  8. CHLOROQUINE [Concomitant]
  9. XYZAL [Concomitant]
  10. METOPROLOL [Concomitant]
     Indication: HYPERTENSION
     Dosage: 25 MG, QD
     Route: 048
  11. DOXIL                              /00055703/ [Concomitant]
     Indication: DEPRESSION
     Dosage: 10 MG, QD
     Route: 048

REACTIONS (3)
  - Rash macular [Recovered/Resolved]
  - Petechiae [Recovered/Resolved]
  - Generalised erythema [Recovered/Resolved]
